FAERS Safety Report 4439255-6 (Version None)
Quarter: 2004Q3

REPORT INFORMATION
  Report Type: 
  Country: None (occurrence: None)
  Receive Date: 20040728
  Receipt Date: 20040419
  Transmission Date: 20050211
  Serious: No
  Sender: FDA-Public Use
  Company Number: USA040465286

PATIENT
  Age: 9 Year
  Sex: Female
  Weight: 29 kg

DRUGS (1)
  1. STRATTERA [Suspect]
     Indication: ATTENTION DEFICIT/HYPERACTIVITY DISORDER
     Dosage: 25 MG/1 IN THE MORNING
     Dates: start: 20040329

REACTIONS (5)
  - DEVELOPMENTAL DELAY [None]
  - DYSPNOEA [None]
  - HEART RATE INCREASED [None]
  - VISION BLURRED [None]
  - WEIGHT DECREASED [None]
